FAERS Safety Report 7990215-8 (Version None)
Quarter: 2011Q4

REPORT INFORMATION
  Report Type: 
  Country: None (occurrence: None)
  Receive Date: 20111215
  Receipt Date: 20111206
  Transmission Date: 20120403
  Serious: Yes (Other)
  Sender: FDA-Public Use
  Company Number: TPG2011A03219

PATIENT
  Age: 42 Year
  Sex: Male

DRUGS (3)
  1. INSULIN [Concomitant]
  2. PIOGLITAZONE HYDROCHLORIDE/METFORMIN HYDROCHLORIDE [Suspect]
     Indication: DIABETES MELLITUS
     Dosage: ORAL
     Route: 048
     Dates: end: 20110101
  3. PIOGLITAZONE HYDROCHLORIDE/METFORMIN HYDROCHLORIDE [Suspect]
     Indication: INSULIN RESISTANCE
     Dosage: ORAL
     Route: 048
     Dates: end: 20110101

REACTIONS (1)
  - RETINAL VEIN OCCLUSION [None]
